FAERS Safety Report 6128548-2 (Version None)
Quarter: 2009Q1

REPORT INFORMATION
  Report Type: 
  Country: None (occurrence: None)
  Receive Date: 20090319
  Receipt Date: 20090317
  Transmission Date: 20090719
  Serious: Yes (Hospitalization)
  Sender: FDA-Public Use
  Company Number: GXKR2009DE03278

PATIENT
  Age: 48 Year
  Sex: Female
  Weight: 69 kg

DRUGS (4)
  1. METRONIDAZOLE [Suspect]
     Indication: HELICOBACTER GASTRITIS
     Dosage: 400 MG, BID, ORAL
     Route: 048
     Dates: start: 20090106, end: 20090112
  2. AMOXICILLIN TRIHYDRATE [Suspect]
     Dosage: 1000 MG, TID, ORAL
     Route: 048
     Dates: start: 20090106, end: 20090112
  3. L-THYROXINE (LEVOTHYROXINE) [Concomitant]
  4. PAROXETINE HCL [Concomitant]

REACTIONS (1)
  - CLOSTRIDIUM DIFFICILE COLITIS [None]
